FAERS Safety Report 5152425-7 (Version None)
Quarter: 2006Q4

REPORT INFORMATION
  Report Type: 
  Country: None (occurrence: None)
  Receive Date: 20061116
  Receipt Date: 20060825
  Transmission Date: 20070319
  Serious: Yes (Death)
  Sender: FDA-Public Use
  Company Number: US-ELI_LILLY_AND_COMPANY-US200608005536

PATIENT
  Age: 67 Year
  Sex: Female
  Weight: 70.748 kg

DRUGS (1)
  1. ZYPREXA [Suspect]
     Indication: SCHIZOPHRENIA
     Dosage: 4 MG, UNK
     Dates: end: 20060101

REACTIONS (2)
  - DEATH [None]
  - DIABETES MELLITUS [None]
